FAERS Safety Report 9846023 (Version 6)
Quarter: 2014Q2

REPORT INFORMATION
  Report Type: Report from Study
  Country: IL (occurrence: IL)
  Receive Date: 20140127
  Receipt Date: 20140603
  Transmission Date: 20141212
  Serious: Yes (Hospitalization)
  Sender: FDA-Public Use
  Company Number: PHHO2014IL001120

PATIENT
  Sex: 0

DRUGS (4)
  1. ACZ885 [Suspect]
     Indication: JUVENILE IDIOPATHIC ARTHRITIS
     Dosage: 4 MG/KG, UNK
     Route: 058
     Dates: start: 20130805, end: 20140427
  2. ACZ885 [Suspect]
     Dosage: UNK
     Route: 058
  3. VITAMIN D [Concomitant]
  4. CORTICOSTEROIDS [Concomitant]

REACTIONS (3)
  - Gastroenteritis [Recovered/Resolved]
  - Juvenile idiopathic arthritis [Recovered/Resolved]
  - Lymphadenopathy [Recovered/Resolved]
